FAERS Safety Report 13695639 (Version 1)
Quarter: 2017Q2

REPORT INFORMATION
  Report Type: Spontaneous
  Country: US (occurrence: US)
  Receive Date: 20170627
  Receipt Date: 20170627
  Transmission Date: 20170830
  Serious: Yes (Other)
  Sender: FDA-Public Use
  Company Number: US-ALLERGAN-1726333US

PATIENT
  Age: 35 Year
  Sex: Male
  Weight: 86.17 kg

DRUGS (2)
  1. APRISO [Concomitant]
     Active Substance: MESALAMINE
     Dosage: UNK
     Route: 048
  2. CANASA [Suspect]
     Active Substance: MESALAMINE
     Indication: COLITIS ULCERATIVE
     Dosage: 1000 MG, QHS
     Route: 054
     Dates: start: 2016

REACTIONS (3)
  - Poor quality drug administered [Unknown]
  - Product colour issue [Unknown]
  - Rectal haemorrhage [Recovering/Resolving]

NARRATIVE: CASE EVENT DATE: 2017
